FAERS Safety Report 19072714 (Version 4)
Quarter: 2021Q2

REPORT INFORMATION
  Report Type: Report from Study
  Country: US (occurrence: US)
  Receive Date: 20210330
  Receipt Date: 20210519
  Transmission Date: 20210717
  Serious: Yes (Hospitalization, Other)
  Sender: FDA-Public Use
  Company Number: US-ASTELLAS-2021US005022

PATIENT
  Age: 55 Year
  Sex: Male

DRUGS (25)
  1. ASG?22CE [Suspect]
     Active Substance: ENFORTUMAB VEDOTIN
     Indication: SQUAMOUS CELL CARCINOMA
     Dosage: 1.25 MG/KG, CYCLIC (DAYS 1, 8, 15 OF 28 DAY CYCLE)
     Route: 042
     Dates: start: 20210202
  2. CALCIUM 500+D [Concomitant]
     Active Substance: CALCIUM\VITAMIN D
     Indication: OSTEOPOROSIS
     Route: 048
  3. PEMBROLIZUMAB. [Concomitant]
     Active Substance: PEMBROLIZUMAB
     Dosage: UNK UNK, UNKNOWN FREQ. C2D1
     Route: 065
     Dates: start: 20200107
  4. PEMBROLIZUMAB. [Concomitant]
     Active Substance: PEMBROLIZUMAB
     Dosage: UNK UNK, UNKNOWN FREQ. C3D1
     Route: 065
     Dates: start: 20200128
  5. PEMBROLIZUMAB. [Concomitant]
     Active Substance: PEMBROLIZUMAB
     Dosage: UNK UNK, UNKNOWN FREQ. C5D1
     Route: 065
     Dates: start: 20200310
  6. KENALOG [Concomitant]
     Active Substance: TRIAMCINOLONE ACETONIDE
     Indication: DERMATITIS
     Dosage: UNK UNK, TWICE DAILY
     Route: 061
  7. ATIVAN [Concomitant]
     Active Substance: LORAZEPAM
     Indication: PROPHYLAXIS OF NAUSEA AND VOMITING
     Dosage: 0.5 MG, AT BEDTIME
     Route: 048
  8. SENOKOT [Concomitant]
     Active Substance: SENNOSIDES
     Indication: CONSTIPATION
     Route: 048
  9. GLYCOLAX [Concomitant]
     Active Substance: POLYETHYLENE GLYCOL 3350
     Indication: CONSTIPATION
     Route: 048
     Dates: end: 20210221
  10. DECADRON [Concomitant]
     Active Substance: DEXAMETHASONE
     Indication: PNEUMONITIS
     Dosage: 0.5 MG, ONCE DAILY (WITH BREAKFAST)
     Route: 048
     Dates: end: 20210223
  11. SYNTHROID [Concomitant]
     Active Substance: LEVOTHYROXINE SODIUM
     Indication: HYPOTHYROIDISM
     Route: 048
     Dates: end: 20210223
  12. PRILOSEC [Concomitant]
     Active Substance: OMEPRAZOLE MAGNESIUM
     Indication: RADIATION OESOPHAGITIS
     Route: 048
     Dates: end: 20210222
  13. PEMBROLIZUMAB. [Concomitant]
     Active Substance: PEMBROLIZUMAB
     Indication: PRODUCT USED FOR UNKNOWN INDICATION
     Dosage: UNK UNK, UNKNOWN FREQ. C1D1
     Route: 065
     Dates: start: 20191210
  14. PEMBROLIZUMAB. [Concomitant]
     Active Substance: PEMBROLIZUMAB
     Dosage: UNK UNK, UNKNOWN FREQ. C4D1
     Route: 065
     Dates: start: 20200218
  15. CALCIUM 500+D [Concomitant]
     Active Substance: CALCIUM\VITAMIN D
     Indication: PROPHYLAXIS
     Route: 048
     Dates: end: 20210223
  16. ZOFRAN [Concomitant]
     Active Substance: ONDANSETRON HYDROCHLORIDE
     Indication: PROPHYLAXIS OF NAUSEA AND VOMITING
     Dosage: 4 MG, TWICE DAILY AS NEEDED
     Route: 048
     Dates: end: 20210223
  17. CISPLATIN. [Concomitant]
     Active Substance: CISPLATIN
     Dosage: 100 MG/M2, UNKNOWN FREQ. C2D1
     Route: 065
     Dates: start: 20181002
  18. DECADRON [Concomitant]
     Active Substance: DEXAMETHASONE
     Dosage: 0.5 MG, ONCE DAILY
     Route: 048
  19. ADVIL [Concomitant]
     Active Substance: IBUPROFEN
     Indication: PAIN
     Route: 048
     Dates: end: 20210222
  20. MOTRIN [Concomitant]
     Active Substance: IBUPROFEN
     Indication: PAIN
     Route: 048
     Dates: end: 20210222
  21. CISPLATIN. [Concomitant]
     Active Substance: CISPLATIN
     Dosage: 100 MG/M2, UNKNOWN FREQ. C2D1
     Route: 065
     Dates: start: 20181009
  22. GLYCOLAX [Concomitant]
     Active Substance: POLYETHYLENE GLYCOL 3350
     Route: 048
  23. ROXICODONE [Concomitant]
     Active Substance: OXYCODONE HYDROCHLORIDE
     Indication: PAIN
     Dosage: 15 MG, EVERY 6 HOURS AS NEEDED
     Route: 048
  24. CISPLATIN. [Concomitant]
     Active Substance: CISPLATIN
     Indication: PRODUCT USED FOR UNKNOWN INDICATION
     Dosage: 100 MG/M2, UNKNOWN FREQ. C1D1
     Route: 065
     Dates: start: 20180911
  25. ZYPREXA [Concomitant]
     Active Substance: OLANZAPINE
     Indication: PROPHYLAXIS OF NAUSEA AND VOMITING
     Route: 048
     Dates: end: 20210221

REACTIONS (7)
  - Electrolyte imbalance [Recovered/Resolved]
  - Nausea [Recovered/Resolved]
  - Upper limb fracture [Recovered/Resolved]
  - Vomiting [Recovered/Resolved]
  - Pancytopenia [Recovering/Resolving]
  - Hypokalaemia [Recovered/Resolved]
  - Rash [Recovering/Resolving]

NARRATIVE: CASE EVENT DATE: 20210209
